FAERS Safety Report 15989988 (Version 3)
Quarter: 2019Q1

REPORT INFORMATION
  Report Type: Spontaneous
  Country: JO (occurrence: JO)
  Receive Date: 20190221
  Receipt Date: 20190301
  Transmission Date: 20190418
  Serious: Yes (Life-Threatening, Other)
  Sender: FDA-Public Use
  Company Number: JO-STRIDES ARCOLAB LIMITED-2019SP001601

PATIENT
  Age: 36 Year
  Sex: Female

DRUGS (10)
  1. CYCLOPHOSPHAMIDE. [Suspect]
     Active Substance: CYCLOPHOSPHAMIDE
     Dosage: 500 MG, UNKNOWN
     Route: 065
     Dates: start: 20131226, end: 20131229
  2. MYCOPHENOLATE MOFETIL. [Suspect]
     Active Substance: MYCOPHENOLATE MOFETIL
     Indication: GLOMERULONEPHRITIS PROLIFERATIVE
     Dosage: 1000 MG, EVERY 12 HRS
     Route: 065
     Dates: start: 2013, end: 201606
  3. METHYLPREDNISOLONE. [Suspect]
     Active Substance: METHYLPREDNISOLONE
     Indication: GLOMERULONEPHRITIS PROLIFERATIVE
     Dosage: 1000 MG, UNKNOWN
     Route: 065
     Dates: start: 20191226, end: 20191229
  4. MYCOPHENOLATE MOFETIL. [Suspect]
     Active Substance: MYCOPHENOLATE MOFETIL
     Indication: SYSTEMIC LUPUS ERYTHEMATOSUS
     Dosage: 1000 MG, BID FOR TWO MONTHS
     Route: 065
  5. RITUXIMAB. [Suspect]
     Active Substance: RITUXIMAB
     Indication: SYSTEMIC LUPUS ERYTHEMATOSUS
  6. CYCLOPHOSPHAMIDE. [Suspect]
     Active Substance: CYCLOPHOSPHAMIDE
     Indication: GLOMERULONEPHRITIS PROLIFERATIVE
     Dosage: 500 MG, 2 WEEK
     Route: 042
     Dates: start: 201308, end: 20131212
  7. METHYLPREDNISOLONE. [Suspect]
     Active Substance: METHYLPREDNISOLONE
     Indication: SYSTEMIC LUPUS ERYTHEMATOSUS
  8. MYCOPHENOLATE MOFETIL. [Suspect]
     Active Substance: MYCOPHENOLATE MOFETIL
     Dosage: 2 DF, EVERY 8 HOURS
     Route: 065
     Dates: start: 20140113, end: 20140208
  9. RITUXIMAB. [Suspect]
     Active Substance: RITUXIMAB
     Indication: GLOMERULONEPHRITIS PROLIFERATIVE
     Dosage: 1000 MG, UNKNOWN
     Route: 065
     Dates: start: 20131226, end: 20131229
  10. CYCLOPHOSPHAMIDE. [Suspect]
     Active Substance: CYCLOPHOSPHAMIDE
     Indication: SYSTEMIC LUPUS ERYTHEMATOSUS
     Dosage: 1000 MG, ONE MONTH
     Route: 042
     Dates: start: 201306, end: 201308

REACTIONS (8)
  - Papilloedema [Recovered/Resolved]
  - Headache [Recovered/Resolved]
  - Diarrhoea [Recovered/Resolved]
  - Off label use [Unknown]
  - Posterior reversible encephalopathy syndrome [Recovered/Resolved]
  - Generalised tonic-clonic seizure [Recovered/Resolved]
  - Retinal haemorrhage [Recovered/Resolved]
  - Blindness [Recovered/Resolved]

NARRATIVE: CASE EVENT DATE: 2013
